FAERS Safety Report 5007610-1 (Version None)
Quarter: 2006Q2

REPORT INFORMATION
  Report Type: 
  Country: None (occurrence: None)
  Receive Date: 20060522
  Receipt Date: 20050224
  Transmission Date: 20061013
  Serious: Yes (Other)
  Sender: FDA-Public Use
  Company Number: PHBS2005JP02932

PATIENT
  Age: 66 Year
  Sex: Female
  Weight: 77 kg

DRUGS (7)
  1. SANDOSTATIN LAR [Suspect]
     Indication: ACROMEGALY
     Dosage: 20MG
     Route: 030
     Dates: start: 20040817, end: 20041213
  2. ASPIRIN [Concomitant]
     Indication: CARDIAC FAILURE CHRONIC
     Dates: start: 20021001
  3. MUCOSTA [Concomitant]
     Indication: GASTRITIS
     Dosage: 300 MG/DAY
     Route: 048
     Dates: start: 19970206
  4. STARSIS [Concomitant]
  5. GASMOTIN [Concomitant]
     Indication: GASTRITIS
     Dosage: 15 MG/DAY
     Route: 048
     Dates: start: 20001102
  6. CYANOCOBALAMIN [Concomitant]
     Indication: DIABETES MELLITUS
     Dosage: 1500 MG/DAY
     Route: 048
     Dates: start: 19960829
  7. SANDOSTATIN [Suspect]
     Indication: ACROMEGALY
     Dosage: 150 UG/DAY
     Dates: start: 20031101

REACTIONS (4)
  - ARRHYTHMIA [None]
  - BRADYCARDIA [None]
  - DIZZINESS [None]
  - SICK SINUS SYNDROME [None]
